FAERS Safety Report 21132652 (Version 1)
Quarter: 2022Q3

REPORT INFORMATION
  Report Type: Spontaneous
  Country: AU (occurrence: AU)
  Receive Date: 20220726
  Receipt Date: 20220726
  Transmission Date: 20221027
  Serious: Yes (Other)
  Sender: FDA-Public Use
  Company Number: AU-BRISTOL-MYERS SQUIBB COMPANY-2022-078260

PATIENT
  Age: 72 Year
  Sex: Male
  Weight: 61 kg

DRUGS (10)
  1. IPILIMUMAB [Suspect]
     Active Substance: IPILIMUMAB
     Indication: Metastatic malignant melanoma
     Route: 042
     Dates: start: 20220105
  2. IPILIMUMAB [Suspect]
     Active Substance: IPILIMUMAB
     Route: 042
     Dates: start: 20220126
  3. IPILIMUMAB [Suspect]
     Active Substance: IPILIMUMAB
     Route: 042
     Dates: start: 20220216
  4. NIVOLUMAB [Concomitant]
     Active Substance: NIVOLUMAB
     Indication: Metastatic malignant melanoma
     Route: 042
     Dates: start: 20210922
  5. NIVOLUMAB [Concomitant]
     Active Substance: NIVOLUMAB
     Route: 042
     Dates: start: 20211006
  6. NIVOLUMAB [Concomitant]
     Active Substance: NIVOLUMAB
     Route: 042
     Dates: start: 20211110
  7. NIVOLUMAB [Concomitant]
     Active Substance: NIVOLUMAB
     Route: 042
     Dates: start: 20211124
  8. NIVOLUMAB [Concomitant]
     Active Substance: NIVOLUMAB
     Route: 042
     Dates: start: 20211208
  9. NIVOLUMAB [Concomitant]
     Active Substance: NIVOLUMAB
     Route: 042
     Dates: start: 20211222
  10. NIVOLUMAB [Concomitant]
     Active Substance: NIVOLUMAB
     Route: 042
     Dates: start: 20220105

REACTIONS (1)
  - Pulmonary toxicity [Recovered/Resolved]
